FAERS Safety Report 4582000-4 (Version None)
Quarter: 2005Q1

REPORT INFORMATION
  Report Type: 
  Country: None (occurrence: None)
  Receive Date: 20050214
  Receipt Date: 20050209
  Transmission Date: 20050727
  Serious: Yes (Hospitalization)
  Sender: FDA-Public Use
  Company Number: CH-MERCK-0502CHE00013

PATIENT
  Age: 71 Year
  Sex: Female

DRUGS (3)
  1. COZAAR [Suspect]
     Indication: HYPERTENSION
     Route: 048
     Dates: start: 19980101, end: 20040101
  2. COZAAR [Suspect]
     Route: 048
     Dates: start: 20041201, end: 20041201
  3. ASPIRIN [Concomitant]
     Route: 048
     Dates: start: 20040101, end: 20040101

REACTIONS (1)
  - HEPATITIS ACUTE [None]
